FAERS Safety Report 7349350-X (Version None)
Quarter: 2011Q1

REPORT INFORMATION
  Report Type: 
  Country: None (occurrence: None)
  Receive Date: 20110314
  Receipt Date: 20100413
  Transmission Date: 20110831
  Serious: No
  Sender: FDA-Public Use
  Company Number: US-ABBOTT-10P-163-0632590-00

PATIENT
  Sex: Female

DRUGS (2)
  1. DEPAKOTE [Suspect]
     Indication: BIPOLAR DISORDER
     Dosage: DOESN'T REMEMBER
     Dates: start: 19980101, end: 20010101
  2. DEPAKOTE ER [Suspect]
     Indication: BIPOLAR DISORDER
     Dates: start: 20100228

REACTIONS (6)
  - BACK PAIN [None]
  - FLATULENCE [None]
  - CONSTIPATION [None]
  - SINUSITIS [None]
  - DYSGEUSIA [None]
  - HICCUPS [None]
